FAERS Safety Report 4592539-3 (Version None)
Quarter: 2005Q1

REPORT INFORMATION
  Report Type: 
  Country: None (occurrence: None)
  Receive Date: 20050222
  Receipt Date: 20050209
  Transmission Date: 20050727
  Serious: Yes (Other)
  Sender: FDA-Public Use
  Company Number: 2005027384

PATIENT
  Age: 83 Year
  Sex: Female
  Weight: 68.0396 kg

DRUGS (5)
  1. DETROL LA [Suspect]
     Indication: HYPERTONIC BLADDER
     Dosage: 4 MG (4 MG , QA) ORAL
     Route: 048
     Dates: start: 20040101
  2. DIOVAN HCT [Concomitant]
  3. OCUVITE (ASCORBIC ACID, RETINOL, TOCOPHEROL) [Concomitant]
  4. ACETYLSALICYLIC ACID SRT [Concomitant]
  5. VITAMINS (VITAMINS) [Concomitant]

REACTIONS (9)
  - BLOOD PRESSURE SYSTOLIC INCREASED [None]
  - CATARACT [None]
  - CONDITION AGGRAVATED [None]
  - DIARRHOEA [None]
  - DRY EYE [None]
  - EAR DISCOMFORT [None]
  - FEELING ABNORMAL [None]
  - LIP DRY [None]
  - THINKING ABNORMAL [None]
